FAERS Safety Report 18664852 (Version 1)
Quarter: 2020Q4

REPORT INFORMATION
  Report Type: Spontaneous
  Country: SE (occurrence: SE)
  Receive Date: 20201225
  Receipt Date: 20201225
  Transmission Date: 20210114
  Serious: Yes (Other)
  Sender: FDA-Public Use
  Company Number: SE-TEVA-2020-SE-1861376

PATIENT
  Sex: Female

DRUGS (4)
  1. SERTRALINE [Suspect]
     Active Substance: SERTRALINE HYDROCHLORIDE
     Dosage: IT IS NOT POSSIBLE TO DETERMINE WHETHER THE SUSPECTED DRUGS WERE GIVEN AT THE SAME TIME OR AT DIFFER
     Route: 048
  2. VENLAFAXINE [Suspect]
     Active Substance: VENLAFAXINE HYDROCHLORIDE
     Dosage: IT IS NOT POSSIBLE TO DETERMINE WHETHER THE SUSPECTED DRUGS WERE GIVEN AT THE SAME TIME OR AT DIFFER
     Route: 048
  3. ESCITALOPRAM [Suspect]
     Active Substance: ESCITALOPRAM OXALATE
     Dosage: IT IS NOT POSSIBLE TO DETERMINE WHETHER THE SUSPECTED DRUGS WERE GIVEN AT THE SAME TIME OR AT DIFFER
     Route: 048
  4. MIRTAZAPINE. [Suspect]
     Active Substance: MIRTAZAPINE
     Dosage: IT IS NOT POSSIBLE TO DETERMINE WHETHER THE SUSPECTED DRUGS WERE GIVEN AT THE SAME TIME OR AT DIFFER
     Route: 048

REACTIONS (1)
  - Haemorrhagic diathesis [Recovered/Resolved]
